FAERS Safety Report 16641670 (Version 2)
Quarter: 2020Q2

REPORT INFORMATION
  Report Type: Spontaneous
  Country: DE (occurrence: DE)
  Receive Date: 20190729
  Receipt Date: 20200413
  Transmission Date: 20200713
  Serious: Yes (Life-Threatening, Hospitalization, Other)
  Sender: FDA-Public Use
  Company Number: DE-AUROBINDO-AUR-APL-2019-044740

PATIENT
  Age: 22 Year
  Sex: Female
  Weight: 55 kg

DRUGS (5)
  1. LIDOCAINE SOLUTION FOR INJECTION [Suspect]
     Active Substance: LIDOCAINE
     Dosage: 120 MILLIGRAM (6 ML OF 2%)
     Route: 045
  2. PROPOFOL. [Concomitant]
     Active Substance: PROPOFOL
     Indication: GENERAL ANAESTHESIA
     Dosage: UNK
     Route: 042
  3. EPINEPHRINE. [Concomitant]
     Active Substance: EPINEPHRINE
     Indication: PRODUCT USED FOR UNKNOWN INDICATION
     Dosage: 15 ?G/ML
     Route: 065
  4. LIDOCAINE SOLUTION FOR INJECTION [Suspect]
     Active Substance: LIDOCAINE
     Indication: LOCAL ANAESTHESIA
     Dosage: 2.2 MILLIGRAM/KILOGRAM
     Route: 065
  5. REMIFENTANIL [Concomitant]
     Active Substance: REMIFENTANIL
     Indication: GENERAL ANAESTHESIA
     Dosage: UNK
     Route: 065

REACTIONS (10)
  - Toxicity to various agents [Recovered/Resolved]
  - Tachycardia [Recovered/Resolved]
  - Left ventricular dysfunction [Recovered/Resolved]
  - Ventricular tachycardia [Recovered/Resolved]
  - Local anaesthetic systemic toxicity [Recovered/Resolved]
  - Hypertension [Recovered/Resolved]
  - Systemic toxicity [Recovered/Resolved]
  - Pulseless electrical activity [Recovered/Resolved]
  - Cardiac arrest [Recovered/Resolved]
  - Pulmonary oedema [Recovered/Resolved]
